FAERS Safety Report 8509487-6 (Version None)
Quarter: 2012Q3

REPORT INFORMATION
  Report Type: 
  Country: None (occurrence: None)
  Receive Date: 20120713
  Receipt Date: 20120711
  Transmission Date: 20120928
  Serious: No
  Sender: FDA-Public Use
  Company Number: US-BAYER-2012-063083

PATIENT
  Age: 22 Year
  Sex: Female

DRUGS (2)
  1. MIRENA [Suspect]
     Indication: MENORRHAGIA
     Dosage: 20 MCG/24HR, CONT
     Route: 015
     Dates: start: 20120501, end: 20120601
  2. MIRENA [Suspect]
     Indication: DYSMENORRHOEA

REACTIONS (2)
  - ADVERSE DRUG REACTION [None]
  - BACK PAIN [None]
